FAERS Safety Report 6930987-4 (Version None)
Quarter: 2010Q3

REPORT INFORMATION
  Report Type: 
  Country: None (occurrence: None)
  Receive Date: 20100818
  Receipt Date: 20100813
  Transmission Date: 20110219
  Serious: Yes (Hospitalization, Other)
  Sender: FDA-Public Use
  Company Number: US-RB-013878-10

PATIENT
  Sex: Male

DRUGS (2)
  1. SUBOXONE [Suspect]
     Indication: DRUG DEPENDENCE
     Route: 065
     Dates: start: 20100601, end: 20100811
  2. ALLEGRA [Concomitant]
     Indication: MULTIPLE ALLERGIES
     Dosage: DOSING DETAILS UNKNOWN
     Route: 065

REACTIONS (2)
  - SOMNOLENCE [None]
  - SUICIDAL IDEATION [None]
